FAERS Safety Report 4771454-6 (Version None)
Quarter: 2005Q3

REPORT INFORMATION
  Report Type: 
  Country: None (occurrence: None)
  Receive Date: 20050914
  Receipt Date: 20050901
  Transmission Date: 20060218
  Serious: Yes (Other)
  Sender: FDA-Public Use
  Company Number: 2005123422

PATIENT
  Sex: Male
  Weight: 117.9352 kg

DRUGS (1)
  1. CELEBREX [Suspect]
     Indication: LIMB OPERATION
     Dosage: 200 MG (200 MG, 1 IN 1 D), ORAL
     Route: 048
     Dates: start: 20000101, end: 20040101

REACTIONS (9)
  - ANOREXIA [None]
  - DEHYDRATION [None]
  - DISCOMFORT [None]
  - FEELING ABNORMAL [None]
  - GASTRIC DISORDER [None]
  - INFLAMMATION [None]
  - NAUSEA [None]
  - SCAR [None]
  - VOMITING [None]
